FAERS Safety Report 25436162 (Version 1)
Quarter: 2025Q2

REPORT INFORMATION
  Report Type: Spontaneous
  Country: FR (occurrence: FR)
  Receive Date: 20250614
  Receipt Date: 20250614
  Transmission Date: 20250717
  Serious: Yes (Other)
  Sender: AUROBINDO
  Company Number: FR-GSK-FR2025GSK047523

PATIENT
  Age: 78 Year
  Sex: Female

DRUGS (3)
  1. CARBOPLATIN [Suspect]
     Active Substance: CARBOPLATIN
     Indication: Endometrial cancer
     Dosage: UNK UNK, EVERY WEEK (~2 AUC WEEKLY (DOSE ADJUSTMENT SINCE INITIATION)  )
     Route: 065
     Dates: start: 20250106
  2. PACLITAXEL [Suspect]
     Active Substance: PACLITAXEL
     Indication: Endometrial cancer
     Dosage: 60 MILLIGRAM/SQ. METER, EVERY WEEK (60 MG/M2 WEEKLY (DOSE ADJUSTMENT SINCE INITIATION))
     Route: 065
     Dates: start: 20250106
  3. DOSTARLIMAB [Suspect]
     Active Substance: DOSTARLIMAB
     Indication: Endometrial cancer
     Route: 042
     Dates: start: 20250106

REACTIONS (3)
  - Adrenal insufficiency [Unknown]
  - Asthenia [Unknown]
  - Incorrect dose administered [Unknown]

NARRATIVE: CASE EVENT DATE: 20250201
